FAERS Safety Report 8019550-4 (Version None)
Quarter: 2012Q1

REPORT INFORMATION
  Report Type: 
  Country: None (occurrence: None)
  Receive Date: 20120103
  Receipt Date: 20111222
  Transmission Date: 20120608
  Serious: Yes (Other)
  Sender: FDA-Public Use
  Company Number: CA-JNJFOC-20120100204

PATIENT
  Sex: Male
  Weight: 63.6 kg

DRUGS (1)
  1. REMICADE [Suspect]
     Indication: CROHN'S DISEASE
     Dosage: 2 INFUSIONS IN TOTAL
     Route: 042
     Dates: start: 20111209

REACTIONS (4)
  - INFUSION RELATED REACTION [None]
  - RESPIRATORY DISORDER [None]
  - INTESTINAL OBSTRUCTION [None]
  - RESPIRATORY TRACT CONGESTION [None]
